FAERS Safety Report 8835071 (Version 2)
Quarter: 2013Q1

REPORT INFORMATION
  Report Type: Spontaneous
  Country: US (occurrence: None)
  Receive Date: 20121009
  Receipt Date: 20121107
  Transmission Date: 20140127
  Serious: No
  Sender: FDA-Public Use
  Company Number: 2012P1059830

PATIENT
  Age: 84 Year
  Sex: Male
  Weight: 124.74 kg

DRUGS (7)
  1. FENTANYL PATCH 25 MCG/HR (NO PREF. NAME) [Suspect]
     Indication: MUSCULOSKELETAL PAIN
     Route: 062
     Dates: start: 20120906
  2. FENTANYL PATCH 25 MCG/HR (NO PREF. NAME) [Suspect]
     Indication: NECK PAIN
     Route: 062
     Dates: start: 20120906
  3. METOPROLOL [Concomitant]
  4. FUROSEMIDE [Concomitant]
  5. MULTIVITAMIN [Concomitant]
  6. METOLAZONE [Concomitant]
  7. COUMADIN [Concomitant]

REACTIONS (2)
  - Dyspnoea [None]
  - Fluid retention [None]
